FAERS Safety Report 6130665-8 (Version None)
Quarter: 2009Q1

REPORT INFORMATION
  Report Type: 
  Country: None (occurrence: None)
  Receive Date: 20090323
  Receipt Date: 20090304
  Transmission Date: 20090719
  Serious: Yes (Hospitalization)
  Sender: FDA-Public Use
  Company Number: 8043698

PATIENT
  Age: 54 Year
  Sex: Male

DRUGS (6)
  1. PREDNISOLONE [Suspect]
     Indication: POLYARTERITIS NODOSA
     Dosage: 50 MG/D, PO
     Route: 048
  2. PREDNISOLONE [Suspect]
     Indication: POLYARTERITIS NODOSA
     Dosage: PO
     Route: 048
  3. PREDNISOLONE [Suspect]
     Indication: POLYARTERITIS NODOSA
     Dosage: 10 MG/D; PO
     Route: 048
     Dates: start: 20040301
  4. PREDNISOLONE [Suspect]
     Indication: POLYARTERITIS NODOSA
     Dosage: 50 MG/D; PO
     Route: 048
     Dates: end: 20050101
  5. PREDNISOLONE [Suspect]
     Indication: POLYARTERITIS NODOSA
     Dosage: PO
     Route: 048
     Dates: start: 20050101
  6. PREDNISOLONE [Suspect]
     Indication: POLYARTERITIS NODOSA
     Dosage: 5 MG/D; PO
     Route: 048

REACTIONS (14)
  - ABSCESS [None]
  - DISEASE RECURRENCE [None]
  - DRUG INEFFECTIVE [None]
  - FISTULA [None]
  - GENERAL PHYSICAL HEALTH DETERIORATION [None]
  - HYPOAESTHESIA [None]
  - LEUKOCYTOSIS [None]
  - LIVEDO RETICULARIS [None]
  - PARAESTHESIA [None]
  - PENILE SWELLING [None]
  - SKIN ULCER [None]
  - TESTICULAR DISORDER [None]
  - TESTICULAR MASS [None]
  - VASCULITIS [None]
